FAERS Safety Report 11309727 (Version 2)
Quarter: 2015Q3

REPORT INFORMATION
  Report Type: Report from Study
  Country: RO (occurrence: RO)
  Receive Date: 20150724
  Receipt Date: 20150724
  Transmission Date: 20151125
  Serious: Yes (Death, Hospitalization, Other)
  Sender: FDA-Public Use
  Company Number: RO-ABBVIE-15P-135-1431460-00

PATIENT
  Age: 75 Year
  Sex: Female

DRUGS (2)
  1. LEPONEX [Concomitant]
     Active Substance: CLOZAPINE
     Indication: PRODUCT USED FOR UNKNOWN INDICATION
  2. DUODOPA [Suspect]
     Active Substance: CARBIDOPA\LEVODOPA
     Indication: PARKINSON^S DISEASE
     Dosage: MD 8 ML, CR 2.6, ED 1.3
     Route: 065
     Dates: start: 20140924, end: 20150720

REACTIONS (10)
  - Seizure [Unknown]
  - Encephalitis [Unknown]
  - Pneumonia [Unknown]
  - Seizure [Unknown]
  - Hallucination [Unknown]
  - Death [Fatal]
  - General physical health deterioration [Not Recovered/Not Resolved]
  - Psychotic disorder [Unknown]
  - Confusional state [Unknown]
  - Loss of consciousness [Unknown]

NARRATIVE: CASE EVENT DATE: 20150717
